FAERS Safety Report 16332828 (Version 3)
Quarter: 2021Q2

REPORT INFORMATION
  Report Type: Spontaneous
  Country: US (occurrence: US)
  Receive Date: 20190520
  Receipt Date: 20210423
  Transmission Date: 20210716
  Serious: No
  Sender: FDA-Public Use
  Company Number: US-PFIZER INC-2019212551

PATIENT
  Age: 65 Year
  Sex: Female

DRUGS (1)
  1. LYRICA CR [Suspect]
     Active Substance: PREGABALIN
     Dosage: 330 MG, DAILY

REACTIONS (1)
  - Illness [Unknown]
